FAERS Safety Report 10684153 (Version 2)
Quarter: 2015Q1

REPORT INFORMATION
  Report Type: Spontaneous
  Country: US (occurrence: US)
  Receive Date: 20141231
  Receipt Date: 20150304
  Transmission Date: 20150720
  Serious: No
  Sender: FDA-Public Use
  Company Number: US-009507513-1412USA010854

PATIENT
  Sex: Female
  Weight: 53.52 kg

DRUGS (1)
  1. NEXPLANON [Suspect]
     Active Substance: ETONOGESTREL
     Indication: CONTRACEPTION
     Dosage: 3 YEAR IMPLANT, IMPLANT IN LEFT ARM
     Route: 059
     Dates: start: 20140102

REACTIONS (7)
  - Weight decreased [Unknown]
  - Malaise [Unknown]
  - Metrorrhagia [Recovered/Resolved]
  - Amenorrhoea [Unknown]
  - Menorrhagia [Recovered/Resolved]
  - Suffocation feeling [Unknown]
  - Unintended pregnancy [Unknown]

NARRATIVE: CASE EVENT DATE: 2014
